FAERS Safety Report 20591708 (Version 1)
Quarter: 2022Q1

REPORT INFORMATION
  Report Type: Spontaneous
  Country: US (occurrence: US)
  Receive Date: 20220314
  Receipt Date: 20220314
  Transmission Date: 20220423
  Serious: Yes (Hospitalization)
  Sender: FDA-Public Use
  Company Number: US-ALKERMES INC.-ALK-2022-001177

PATIENT
  Age: 19 Year
  Sex: Male

DRUGS (3)
  1. VIVITROL [Suspect]
     Active Substance: NALTREXONE
     Indication: Alcoholism
     Dosage: 380 MILLIGRAM, QMO
     Route: 030
     Dates: start: 20220218
  2. VIVITROL [Suspect]
     Active Substance: NALTREXONE
     Dosage: 380 MILLIGRAM, QMO
     Route: 030
     Dates: start: 20211222, end: 20211222
  3. SUBOXONE [Suspect]
     Active Substance: BUPRENORPHINE HYDROCHLORIDE\NALOXONE HYDROCHLORIDE
     Indication: Withdrawal syndrome
     Dosage: 8 MILLIGRAM
     Route: 065
     Dates: start: 202203

REACTIONS (10)
  - Substance abuse [Recovered/Resolved]
  - Euphoric mood [Recovered/Resolved]
  - Contraindicated product administered [Not Recovered/Not Resolved]
  - Anger [Not Recovered/Not Resolved]
  - Stereotypy [Recovered/Resolved]
  - Intentional self-injury [Recovered/Resolved]
  - Agitation [Not Recovered/Not Resolved]
  - Withdrawal syndrome [Unknown]
  - Insomnia [Recovered/Resolved]
  - Drug abuse [Recovered/Resolved]

NARRATIVE: CASE EVENT DATE: 20220201
